FAERS Safety Report 17283163 (Version 2)
Quarter: 2020Q1

REPORT INFORMATION
  Report Type: Spontaneous
  Country: US (occurrence: US)
  Receive Date: 20200117
  Receipt Date: 20200206
  Transmission Date: 20200409
  Serious: Yes (Hospitalization)
  Sender: FDA-Public Use
  Company Number: US-PFIZER INC-2019540888

PATIENT
  Age: 67 Year
  Sex: Female
  Weight: 121.9 kg

DRUGS (5)
  1. LYRICA [Suspect]
     Active Substance: PREGABALIN
     Indication: BACK PAIN
     Dosage: 150 MG, TWICE DAILY (150 MG X 2)
     Route: 048
     Dates: start: 2000
  2. FOSINOPRIL [Concomitant]
     Active Substance: FOSINOPRIL
     Indication: HYPERTENSION
  3. METFORMIN [Concomitant]
     Active Substance: METFORMIN HYDROCHLORIDE
     Indication: CARDIAC DISORDER
     Dosage: HALF A PILL, TWICE DAILY
     Route: 048
     Dates: start: 2010
  4. LYRICA [Suspect]
     Active Substance: PREGABALIN
     Indication: NEURALGIA
  5. FOSINOPRIL [Concomitant]
     Active Substance: FOSINOPRIL
     Indication: STENT PLACEMENT
     Dosage: UNK, ONCE DAILY
     Route: 048

REACTIONS (4)
  - Chest discomfort [Unknown]
  - Nausea [Unknown]
  - Fatigue [Unknown]
  - Peripheral swelling [Unknown]
